FAERS Safety Report 9911518 (Version 2)
Quarter: 2014Q1

REPORT INFORMATION
  Report Type: Spontaneous
  Country: DE (occurrence: DE)
  Receive Date: 20140219
  Receipt Date: 20140318
  Transmission Date: 20141002
  Serious: Yes (Hospitalization)
  Sender: FDA-Public Use
  Company Number: PHHY2014DE018994

PATIENT
  Age: 17 Year
  Sex: Female
  Weight: 65 kg

DRUGS (2)
  1. GILENYA [Suspect]
     Indication: RELAPSING-REMITTING MULTIPLE SCLEROSIS
     Dosage: 0.5 MG, ONCE IN EVERY THIRD DAY
     Route: 048
     Dates: start: 20130225, end: 20140106
  2. GILENYA [Suspect]
     Indication: OFF LABEL USE

REACTIONS (3)
  - Pyelonephritis [Recovered/Resolved]
  - Tonsillitis [Recovered/Resolved]
  - Prescribed underdose [Unknown]
